FAERS Safety Report 10211559 (Version 1)
Quarter: 2014Q2

REPORT INFORMATION
  Report Type: Spontaneous
  Country: IN (occurrence: IN)
  Receive Date: 20140602
  Receipt Date: 20140602
  Transmission Date: 20141212
  Serious: Yes (Other)
  Sender: FDA-Public Use
  Company Number: IN-ACTAVIS-2014-11798

PATIENT
  Age: 16 Year
  Sex: Male

DRUGS (2)
  1. PHENYTOIN (AMALLC) [Suspect]
     Indication: EPILEPSY
     Dosage: 300 MG, DAILY
     Route: 048
  2. FOLIC ACID [Concomitant]
     Indication: PRODUCT USED FOR UNKNOWN INDICATION
     Dosage: 5 MG, DAILY
     Route: 065

REACTIONS (1)
  - Drug reaction with eosinophilia and systemic symptoms [Recovered/Resolved]
